FAERS Safety Report 10309435 (Version 8)
Quarter: 2015Q1

REPORT INFORMATION
  Report Type: Spontaneous
  Country: US (occurrence: US)
  Receive Date: 20140716
  Receipt Date: 20150213
  Transmission Date: 20150720
  Serious: Yes (Death, Hospitalization, Other)
  Sender: FDA-Public Use
  Company Number: US-009507513-1407USA006801

PATIENT
  Sex: Male
  Weight: 154.2 kg

DRUGS (1)
  1. JANUVIA [Suspect]
     Active Substance: SITAGLIPTIN PHOSPHATE
     Indication: TYPE 2 DIABETES MELLITUS
     Dosage: 100 MG, QD
     Route: 048
     Dates: start: 20090312, end: 20121128

REACTIONS (45)
  - Pulmonary embolism [Unknown]
  - Hypertension [Unknown]
  - Anaemia [Unknown]
  - Urosepsis [Fatal]
  - Tooth fracture [Unknown]
  - Urine flow decreased [Unknown]
  - Hepatorenal syndrome [Fatal]
  - Gastrointestinal haemorrhage [Unknown]
  - Dyspnoea [Unknown]
  - Knee operation [Unknown]
  - Asthma [Unknown]
  - Scoliosis [Unknown]
  - Abdominal pain lower [Unknown]
  - Acute myocardial infarction [Unknown]
  - Large intestine polyp [Unknown]
  - Spinal column stenosis [Unknown]
  - Hepatic steatosis [Unknown]
  - Haematochezia [Unknown]
  - Pancreatic carcinoma metastatic [Fatal]
  - Pancreatitis [Unknown]
  - Chronic obstructive pulmonary disease [Not Recovered/Not Resolved]
  - Gastrooesophageal reflux disease [Unknown]
  - Pulmonary mass [Unknown]
  - Deep vein thrombosis [Unknown]
  - Intervertebral disc protrusion [Unknown]
  - Cholecystectomy [Unknown]
  - Biliary sphincterotomy [Unknown]
  - Bile duct stent insertion [Unknown]
  - Metastases to bone [Unknown]
  - Gallbladder disorder [Unknown]
  - Radiotherapy to pancreas [Unknown]
  - Gynaecomastia [Unknown]
  - Hypoglycaemia [Unknown]
  - Irritable bowel syndrome [Unknown]
  - Thrombocytopenia [Unknown]
  - Neutrophil count decreased [Unknown]
  - Vascular cauterisation [Unknown]
  - Haemorrhoids [Unknown]
  - Respiratory failure [Fatal]
  - Peritonitis [Fatal]
  - Pancytopenia [Unknown]
  - Metastases to liver [Unknown]
  - Benign prostatic hyperplasia [Unknown]
  - Sleep apnoea syndrome [Unknown]
  - Elbow operation [Unknown]

NARRATIVE: CASE EVENT DATE: 201110
